FAERS Safety Report 6789884-X (Version None)
Quarter: 2010Q2

REPORT INFORMATION
  Report Type: 
  Country: None (occurrence: None)
  Receive Date: 20100624
  Receipt Date: 20100614
  Transmission Date: 20101027
  Serious: Yes (Hospitalization)
  Sender: FDA-Public Use
  Company Number: US-JNJFOC-20100606296

PATIENT
  Sex: Male
  Weight: 87.09 kg

DRUGS (5)
  1. REMICADE [Suspect]
     Indication: RHEUMATOID ARTHRITIS
     Dosage: FREQUENCY NOTED AS ^Q8^
     Route: 042
  2. ZESTRIL [Concomitant]
  3. HYDROCHLOROTHIAZIDE [Concomitant]
  4. PREDNISONE [Concomitant]
  5. NORVASC [Concomitant]

REACTIONS (21)
  - ASTHENIA [None]
  - BACTERIAL INFECTION [None]
  - CANDIDIASIS [None]
  - CATHETER SITE INFECTION [None]
  - COUGH [None]
  - DIARRHOEA [None]
  - DRUG WITHDRAWAL SYNDROME [None]
  - DYSPHAGIA [None]
  - DYSPNOEA [None]
  - HYPERGLYCAEMIA [None]
  - HYPERTENSION [None]
  - HYPOPHAGIA [None]
  - HYPOTENSION [None]
  - LEGIONELLA INFECTION [None]
  - PNEUMONIA LEGIONELLA [None]
  - PNEUMOTHORAX [None]
  - PRODUCTIVE COUGH [None]
  - RENAL FAILURE ACUTE [None]
  - RESPIRATORY FAILURE [None]
  - RHEUMATOID ARTHRITIS [None]
  - SEPSIS [None]
